FAERS Safety Report 5118730-5 (Version None)
Quarter: 2006Q4

REPORT INFORMATION
  Report Type: 
  Country: None (occurrence: None)
  Receive Date: 20061002
  Receipt Date: 20060921
  Transmission Date: 20070319
  Serious: Yes (Death)
  Sender: FDA-Public Use
  Company Number: NSADSS2003002105

PATIENT
  Sex: Female

DRUGS (13)
  1. REMICADE [Suspect]
     Route: 041
     Dates: start: 20001012, end: 20010703
  2. REMICADE [Suspect]
     Indication: RHEUMATOID ARTHRITIS
     Route: 041
     Dates: start: 20001012, end: 20010703
  3. BETAPACE [Concomitant]
  4. BUMETANIDE [Concomitant]
  5. COZAAR [Concomitant]
  6. PREVACID [Concomitant]
  7. PREDNISONE [Concomitant]
  8. COUMADIN [Concomitant]
  9. TAMBOCOR [Concomitant]
  10. ULTRACET [Concomitant]
  11. OSCAL [Concomitant]
  12. MULTI-VITAMIN [Concomitant]
  13. ASCORBIC ACID [Concomitant]

REACTIONS (4)
  - ANAEMIA [None]
  - CARDIAC FAILURE CONGESTIVE [None]
  - DEATH [None]
  - RENAL FAILURE [None]
